FAERS Safety Report 15433615 (Version 1)
Quarter: 2018Q3

REPORT INFORMATION
  Report Type: Report from Study
  Country: IS (occurrence: IS)
  Receive Date: 20180927
  Receipt Date: 20180927
  Transmission Date: 20181010
  Serious: Yes (Other)
  Sender: FDA-Public Use
  Company Number: IS-ROCHE-2190343

PATIENT
  Age: 49 Year
  Sex: Male

DRUGS (6)
  1. LEDIPASVIR/SOFOSBUVIR [Suspect]
     Active Substance: LEDIPASVIR\SOFOSBUVIR
     Indication: CHRONIC HEPATITIS C
     Dosage: UNK
     Route: 065
  2. CITALOPRAM HYDROBROMIDE. [Concomitant]
     Active Substance: CITALOPRAM HYDROBROMIDE
     Route: 065
  3. OMEPRAZOL [Concomitant]
     Active Substance: OMEPRAZOLE
     Route: 065
  4. RIBAVIRIN. [Suspect]
     Active Substance: RIBAVIRIN
     Indication: CHRONIC HEPATITIS C
     Dosage: UNK
     Route: 065
  5. RISPERIDONE. [Concomitant]
     Active Substance: RISPERIDONE
     Dosage: RISON
     Route: 065
  6. LYRICA [Concomitant]
     Active Substance: PREGABALIN
     Route: 065

REACTIONS (2)
  - Hepatitis C [Unknown]
  - Drug ineffective [Unknown]
